FAERS Safety Report 6734042-8 (Version None)
Quarter: 2010Q2

REPORT INFORMATION
  Report Type: 
  Country: None (occurrence: None)
  Receive Date: 20100520
  Receipt Date: 20100513
  Transmission Date: 20101027
  Serious: Yes (Disabling)
  Sender: FDA-Public Use
  Company Number: US-ELI_LILLY_AND_COMPANY-US201005003828

PATIENT
  Sex: Female

DRUGS (8)
  1. HUMULIN 70/30 [Suspect]
     Dosage: 45 U, 2/D
     Dates: start: 19920101, end: 20090801
  2. HUMALOG [Suspect]
     Dosage: 25 U, 3/D
     Dates: start: 20090801
  3. LEVEMIR [Concomitant]
  4. NEXIUM [Concomitant]
     Dosage: 40 MG, 2/D
  5. LASIX [Concomitant]
     Dosage: 40 MG, 2/D
  6. GLUCOTROL [Concomitant]
  7. VICODIN [Concomitant]
     Dosage: 5 MG, 3/D
  8. FLEXERIL [Concomitant]

REACTIONS (13)
  - BLOOD CHOLESTEROL INCREASED [None]
  - BLOOD GLUCOSE DECREASED [None]
  - BLOOD GLUCOSE INCREASED [None]
  - DIABETES MELLITUS INADEQUATE CONTROL [None]
  - FEELING ABNORMAL [None]
  - FIBROMYALGIA [None]
  - GLYCOSYLATED HAEMOGLOBIN INCREASED [None]
  - HYPERHIDROSIS [None]
  - HYPERTENSION [None]
  - OSTEOARTHRITIS [None]
  - PAIN [None]
  - SCIATIC NERVE INJURY [None]
  - TREMOR [None]
